FAERS Safety Report 8201500-9 (Version None)
Quarter: 2012Q1

REPORT INFORMATION
  Report Type: 
  Country: None (occurrence: None)
  Receive Date: 20120308
  Receipt Date: 20120301
  Transmission Date: 20120608
  Serious: Yes (Death)
  Sender: FDA-Public Use
  Company Number: 1202856

PATIENT
  Age: 52 Year
  Sex: Female

DRUGS (10)
  1. (TRIMETON /0072502/) [Concomitant]
  2. ZOFRAN [Concomitant]
  3. DEXAMETHASONE SODIUM PHOSPHATE [Concomitant]
  4. (TEVAGRASTIM) [Suspect]
     Indication: PRODUCT USED FOR UNKNOWN INDICATION
     Dosage: 34 UG MICROGRAM(S) SUBCUTANEOUS
     Route: 058
     Dates: start: 20120125, end: 20120128
  5. EPIRUBICIN [Suspect]
     Indication: BREAST CANCER
     Dosage: 130 MG MILLIGRAM(S) ; 136 MG MILLIGRAM(S) INTRAVENOUS (NOT OTHERWISE SPECIFIED)
     Route: 042
     Dates: start: 20111230
  6. EPIRUBICIN [Suspect]
     Indication: BREAST CANCER
     Dosage: 130 MG MILLIGRAM(S) ; 136 MG MILLIGRAM(S) INTRAVENOUS (NOT OTHERWISE SPECIFIED)
     Route: 042
     Dates: start: 20120120, end: 20120120
  7. (RANIDIL) [Concomitant]
  8. DOCETAXEL [Suspect]
     Indication: BREAST CANCER
     Dosage: 130 MG MILLIGRAM(S) ; 136 MG MILLIGRAM(S) INTRAVENOUS (NOT OTHERWISE SPECIFIED)
     Route: 042
     Dates: start: 20111230
  9. DOCETAXEL [Suspect]
     Indication: BREAST CANCER
     Dosage: 130 MG MILLIGRAM(S) ; 136 MG MILLIGRAM(S) INTRAVENOUS (NOT OTHERWISE SPECIFIED)
     Route: 042
     Dates: start: 20120120, end: 20120120
  10. EMEND [Concomitant]

REACTIONS (3)
  - LEUKOPENIA [None]
  - INTESTINAL ISCHAEMIA [None]
  - HYPOVOLAEMIC SHOCK [None]
